FAERS Safety Report 21171978 (Version 1)
Quarter: 2022Q3

REPORT INFORMATION
  Report Type: Spontaneous
  Country: US (occurrence: US)
  Receive Date: 20220804
  Receipt Date: 20220804
  Transmission Date: 20221027
  Serious: Yes (Other)
  Sender: FDA-Public Use
  Company Number: US-AMGEN-USASP2022132368

PATIENT
  Sex: Female

DRUGS (1)
  1. OTEZLA [Suspect]
     Active Substance: APREMILAST
     Indication: Psoriatic arthropathy
     Dosage: 30 MILLIGRAM, BID
     Route: 048
     Dates: start: 20210408

REACTIONS (6)
  - Psoriatic arthropathy [Unknown]
  - Alopecia [Unknown]
  - Product dose omission issue [Unknown]
  - Therapy non-responder [Unknown]
  - Headache [Unknown]
  - Diarrhoea [Unknown]
